FAERS Safety Report 12098692 (Version 2)
Quarter: 2016Q1

REPORT INFORMATION
  Report Type: Report from Study
  Country: US (occurrence: US)
  Receive Date: 20160222
  Receipt Date: 20160325
  Transmission Date: 20160526
  Serious: No
  Sender: FDA-Public Use
  Company Number: US-AMGEN-USASP2016018018

PATIENT
  Age: 43 Year
  Sex: Male

DRUGS (1)
  1. ENBREL [Suspect]
     Active Substance: ETANERCEPT
     Indication: RHEUMATOID ARTHRITIS
     Dosage: 50 MG, QWK
     Route: 058
     Dates: start: 20160208

REACTIONS (5)
  - Feeling abnormal [Unknown]
  - Injection site pain [Unknown]
  - Injection site haemorrhage [Unknown]
  - Hypotension [Unknown]
  - Injection site discomfort [Unknown]

NARRATIVE: CASE EVENT DATE: 201602
